FAERS Safety Report 14948982 (Version 1)
Quarter: 2018Q2

REPORT INFORMATION
  Report Type: Spontaneous
  Country: IT (occurrence: IT)
  Receive Date: 20180529
  Receipt Date: 20180529
  Transmission Date: 20180711
  Serious: Yes (Hospitalization)
  Sender: FDA-Public Use
  Company Number: IT-PFIZER INC-2018216136

PATIENT
  Age: 74 Year
  Sex: Female

DRUGS (2)
  1. TAVOR (LORAZEPAM) [Suspect]
     Active Substance: LORAZEPAM
     Dosage: 20 DF, SINGLE
     Route: 048
     Dates: start: 20180321, end: 20180321
  2. AMISULPRIDE [Suspect]
     Active Substance: AMISULPRIDE
     Dosage: 12 DF, SINGLE
     Route: 048
     Dates: start: 20180321, end: 20180321

REACTIONS (3)
  - Drug abuse [Recovered/Resolved]
  - Suicide attempt [Recovered/Resolved]
  - Sopor [Recovered/Resolved]

NARRATIVE: CASE EVENT DATE: 20180321
